FAERS Safety Report 8112244-6 (Version None)
Quarter: 2012Q1

REPORT INFORMATION
  Report Type: 
  Country: None (occurrence: None)
  Receive Date: 20120203
  Receipt Date: 20120126
  Transmission Date: 20120608
  Serious: Yes (Other)
  Sender: FDA-Public Use
  Company Number: GB-BAYER-2011-115803

PATIENT
  Age: 37 Year
  Sex: Female
  Weight: 51 kg

DRUGS (2)
  1. CLOTRIMAZOLE [Suspect]
     Dosage: UNK
     Dates: start: 20111203, end: 20111205
  2. CLOTRIMAZOLE [Suspect]
     Dosage: 2X200 MG IN TWO DAYS
     Dates: start: 20111124, end: 20111125

REACTIONS (4)
  - ABDOMINAL PAIN LOWER [None]
  - GENITAL HAEMORRHAGE [None]
  - VAGINAL HAEMORRHAGE [None]
  - VAGINAL DISCHARGE [None]
